FAERS Safety Report 12075601 (Version 1)
Quarter: 2016Q1

REPORT INFORMATION
  Report Type: Spontaneous
  Country: ES (occurrence: ES)
  Receive Date: 20160213
  Receipt Date: 20160213
  Transmission Date: 20160526
  Serious: Yes (Other)
  Sender: FDA-Public Use
  Company Number: ES-AUROBINDO-AUR-APL-2013-10736

PATIENT

DRUGS (6)
  1. VALSARTAN 160MG [Suspect]
     Active Substance: VALSARTAN
     Dosage: UNK UNK,UNK,,INCREASING 40 MG
     Route: 065
  2. TORASEMIDE [Concomitant]
     Active Substance: TORSEMIDE
     Indication: PRODUCT USED FOR UNKNOWN INDICATION
     Dosage: 5 MG,UNK,
     Route: 065
  3. VALSARTAN 160MG [Suspect]
     Active Substance: VALSARTAN
     Indication: BLOOD PRESSURE MEASUREMENT
     Dosage: 160 MG,UNK,
     Route: 065
  4. LEVOTHYROXINE. [Concomitant]
     Active Substance: LEVOTHYROXINE
     Dosage: 75 ?G,UNK,
     Route: 065
  5. LEVOTHYROXINE. [Concomitant]
     Active Substance: LEVOTHYROXINE
     Indication: PRODUCT USED FOR UNKNOWN INDICATION
     Dosage: 100 ?G,UNK,
     Route: 065
  6. AMLODIPINO AUROBINDO 10 MG COMPRIMIDOS EFG [Suspect]
     Active Substance: AMLODIPINE BESYLATE
     Indication: PRODUCT USED FOR UNKNOWN INDICATION
     Dosage: 10 MG,UNK,
     Route: 065

REACTIONS (16)
  - Complex regional pain syndrome [Recovering/Resolving]
  - Fall [None]
  - Gait disturbance [Recovering/Resolving]
  - Contusion [None]
  - Mental status changes [Recovering/Resolving]
  - Injury [None]
  - Allodynia [Recovering/Resolving]
  - Depression [Recovering/Resolving]
  - Peau d^orange [Recovering/Resolving]
  - Dysaesthesia [Recovering/Resolving]
  - Anxiety [Recovering/Resolving]
  - Pain in extremity [Recovering/Resolving]
  - Amyotrophy [Recovering/Resolving]
  - Erythema [Recovering/Resolving]
  - Laceration [None]
  - Oedema peripheral [Recovered/Resolved]
